FAERS Safety Report 9139223 (Version 2)
Quarter: 2013Q1

REPORT INFORMATION
  Report Type: Spontaneous
  Country: ES (occurrence: ES)
  Receive Date: 20130305
  Receipt Date: 20130314
  Transmission Date: 20140127
  Serious: Yes (Hospitalization, Other)
  Sender: FDA-Public Use
  Company Number: ES-PFIZER INC-2013071801

PATIENT
  Age: 54 Year
  Sex: Female

DRUGS (6)
  1. ALDACTONE [Suspect]
     Indication: ASCITES
     Dosage: 50 MG, 1X/DAY
     Route: 048
     Dates: start: 20120609, end: 20120723
  2. TRAMADOL HCL [Interacting]
     Indication: BACK PAIN
     Dosage: 100 MG DAILY
     Route: 048
     Dates: start: 20120711, end: 20120723
  3. LORAZEPAM [Interacting]
     Dosage: 3 MG DAILY
     Route: 048
     Dates: start: 201207, end: 20120723
  4. FUROSEMIDE [Interacting]
     Indication: ASCITES
     Dosage: 20 MG DAILY
     Route: 048
     Dates: start: 20120609, end: 20120723
  5. PARACETAMOL [Concomitant]
     Indication: PAIN
     Dosage: 2 G DAILY
     Route: 048
     Dates: start: 2010
  6. SPIRAXIN [Concomitant]
     Indication: PROPHYLAXIS
     Dosage: 400 MG DAILY
     Route: 048
     Dates: start: 2011

REACTIONS (3)
  - Drug interaction [Recovered/Resolved]
  - Hepatic encephalopathy [Recovered/Resolved]
  - Urinary tract infection [Unknown]
